FAERS Safety Report 9915613 (Version 1)
Quarter: 2014Q1

REPORT INFORMATION
  Report Type: Spontaneous
  Country: US (occurrence: None)
  Receive Date: 20140219
  Receipt Date: 20140219
  Transmission Date: 20141002
  Serious: Yes (Disabling)
  Sender: FDA-Public Use
  Company Number: None

PATIENT
  Age: 22 Year
  Sex: Female
  Weight: 65.77 kg

DRUGS (1)
  1. WELLBUTRIN XL 150MG BIOVAIL [Suspect]
     Indication: IRRITABLE BOWEL SYNDROME
     Dosage: 1 PILL TWICE DAILY
     Route: 048
     Dates: start: 20121118, end: 20121122

REACTIONS (1)
  - Tinnitus [None]
